FAERS Safety Report 5524545-6 (Version None)
Quarter: 2007Q4

REPORT INFORMATION
  Report Type: 
  Country: None (occurrence: None)
  Receive Date: 20071123
  Receipt Date: 20071105
  Transmission Date: 20080405
  Serious: Yes (Hospitalization)
  Sender: FDA-Public Use
  Company Number: GB-RANBAXY-2007RR-11284

PATIENT

DRUGS (10)
  1. CLARITHROMYCIN 500MG TABLETS [Suspect]
     Dosage: UNK
     Dates: end: 20071009
  2. EPILIM [Suspect]
     Indication: EPILEPSY
     Dosage: 400 MG, BID
     Route: 048
  3. ATORVASTATIN CALCIUM [Concomitant]
     Dosage: 10 MG, QD
  4. BISOPROLOL FUMARATE [Concomitant]
  5. DIAZEPAM [Concomitant]
     Dosage: 100 UNK, UNK
  6. LAMICTAL [Concomitant]
     Dosage: 100 MG, BID
  7. LEVOTHYROXINE SODIUM [Concomitant]
     Dosage: 50 MG, QD
  8. NEXIUM [Concomitant]
     Dosage: 20 MG, QD
  9. TEMAZEPAM [Concomitant]
     Dosage: 10 MG, UNK
  10. VALSARTAN [Concomitant]
     Dosage: 40 MG, QD

REACTIONS (3)
  - CONVULSION [None]
  - DRUG INTERACTION [None]
  - TREMOR [None]
